FAERS Safety Report 11736883 (Version 1)
Quarter: 2015Q4

REPORT INFORMATION
  Report Type: Spontaneous
  Country: US (occurrence: US)
  Receive Date: 20151113
  Receipt Date: 20151113
  Transmission Date: 20160304
  Serious: Yes (Hospitalization)
  Sender: FDA-Public Use
  Company Number: US-INCYTE CORPORATION-2015IN005783

PATIENT
  Sex: Female

DRUGS (6)
  1. VITAMIN D3 [Concomitant]
     Active Substance: CHOLECALCIFEROL
  2. PERCOCET                           /00446701/ [Concomitant]
     Active Substance: ACETAMINOPHEN\OXYCODONE HYDROCHLORIDE\OXYCODONE TEREPHTHALATE
  3. JAKAFI [Suspect]
     Active Substance: RUXOLITINIB
     Indication: MYELOFIBROSIS
     Dosage: 10 MG, BID
     Route: 048
  4. GABAPENTIN. [Concomitant]
     Active Substance: GABAPENTIN
  5. GLUCOSAMINE [Concomitant]
     Active Substance: GLUCOSAMINE
  6. WARFARIN [Concomitant]
     Active Substance: WARFARIN

REACTIONS (2)
  - Drug dose omission [Unknown]
  - Malaise [Unknown]
